FAERS Safety Report 15933493 (Version 4)
Quarter: 2019Q2

REPORT INFORMATION
  Report Type: Spontaneous
  Country: US (occurrence: US)
  Receive Date: 20190207
  Receipt Date: 20190528
  Transmission Date: 20190711
  Serious: Yes (Other)
  Sender: FDA-Public Use
  Company Number: US-ASTRAZENECA-2018SF14372

PATIENT
  Age: 67 Year
  Sex: Male
  Weight: 69.4 kg

DRUGS (8)
  1. PRILOSEC OTC [Suspect]
     Active Substance: OMEPRAZOLE MAGNESIUM
     Indication: ULCERATIVE GASTRITIS
     Route: 048
  2. PAXIL [Concomitant]
     Active Substance: PAROXETINE HYDROCHLORIDE
  3. TRICOR [Concomitant]
     Active Substance: FENOFIBRATE
  4. PRILOSEC [Suspect]
     Active Substance: OMEPRAZOLE MAGNESIUM
     Indication: ULCERATIVE GASTRITIS
     Route: 048
     Dates: start: 20060101, end: 20160415
  5. PRILOSEC [Suspect]
     Active Substance: OMEPRAZOLE MAGNESIUM
     Indication: ULCERATIVE GASTRITIS
     Dosage: 20 MG DAILY
     Route: 048
     Dates: start: 2003, end: 2014
  6. PRILOSEC OTC [Suspect]
     Active Substance: OMEPRAZOLE MAGNESIUM
     Indication: ULCERATIVE GASTRITIS
     Dosage: 20 MG DAILY
     Route: 048
     Dates: start: 2003, end: 2014
  7. PRAVASTATIN. [Concomitant]
     Active Substance: PRAVASTATIN
  8. PRILOSEC [Suspect]
     Active Substance: OMEPRAZOLE MAGNESIUM
     Indication: ULCERATIVE GASTRITIS
     Dosage: GENERIC
     Route: 065
     Dates: start: 2015, end: 2018

REACTIONS (3)
  - Renal injury [Unknown]
  - Chronic kidney disease [Unknown]
  - Acute kidney injury [Not Recovered/Not Resolved]

NARRATIVE: CASE EVENT DATE: 2014
